FAERS Safety Report 7933034-0 (Version None)
Quarter: 2011Q4

REPORT INFORMATION
  Report Type: 
  Country: None (occurrence: None)
  Receive Date: 20111121
  Receipt Date: 20111121
  Transmission Date: 20120403
  Serious: Yes (Hospitalization)
  Sender: FDA-Public Use
  Company Number: None

PATIENT
  Sex: Female
  Weight: 74 kg

DRUGS (4)
  1. VINCRISTINE SULFATE [Suspect]
     Dosage: 6 MG
  2. PEG-L-ASPARGINASE (K-H) [Suspect]
     Dosage: 4425 IU
  3. DEXAMETHASONE [Suspect]
     Dosage: 252 MG
  4. DOXORUBICIN HCL [Suspect]
     Dosage: 132.78 MG

REACTIONS (4)
  - MYALGIA [None]
  - ACTIVITIES OF DAILY LIVING IMPAIRED [None]
  - PAIN IN EXTREMITY [None]
  - ARTHRALGIA [None]
